FAERS Safety Report 13498308 (Version 2)
Quarter: 2017Q2

REPORT INFORMATION
  Report Type: Report from Study
  Country: CA (occurrence: CA)
  Receive Date: 20170429
  Receipt Date: 20170512
  Transmission Date: 20170830
  Serious: Yes (Death)
  Sender: FDA-Public Use
  Company Number: CA-HLSUS-2017-CA-000422

PATIENT
  Age: 68 Year
  Sex: Female
  Weight: 55 kg

DRUGS (17)
  1. SAPHRIS [Concomitant]
     Active Substance: ASENAPINE MALEATE
     Route: 048
  2. ISOPTO ATROPINE [Concomitant]
     Active Substance: ATROPINE SULFATE
     Dosage: INSTILL 2 DROPS UNDER THE TONGUE TWICE A DAY IF NEEDED
     Route: 048
  3. JAMP SENNA DOCUSATE SODIUM [Concomitant]
     Route: 048
  4. APO ANASTROZOLE [Concomitant]
     Dosage: TAKE ONE PILL ONCE A DAY, MORNING
     Route: 048
  5. CLOZARIL [Suspect]
     Active Substance: CLOZAPINE
     Indication: SCHIZOPHRENIA
     Dosage: 100 MG BED TIME
     Route: 048
     Dates: start: 20010227
  6. VITAMIN D3 [Concomitant]
     Active Substance: CHOLECALCIFEROL
     Dosage: TAKE HALF A PILL TWICE A DAY MORNING AND AT DINNER
     Route: 048
  7. CALCIUM PLUS 600MG [Concomitant]
     Route: 048
  8. APO LITHIUM CARBONATE [Concomitant]
     Dosage: TAKE ONE CAPSULE TWICE A DAY IN THE MORNING AND DINNER
     Route: 048
  9. APO RISPERIDONE [Concomitant]
     Dosage: TAKE ONE PILL 4 TIMES A DAY
     Route: 048
  10. APO-TEMAZEPAM 30 MG CAPSULE [Concomitant]
     Dosage: TAKE ONE CAPSULE AT BEDTIME
     Route: 048
  11. SYNTHROID [Concomitant]
     Active Substance: LEVOTHYROXINE SODIUM
     Dosage: TAKE ONE PILL ONCE A DAY BEFORE BREAKFAST
     Route: 048
  12. TEVA QUETIAPINE XR [Concomitant]
     Dosage: TAKE ONE PILL ONCE A DAY AT DINNER
     Route: 048
  13. APO OLANZAPINE [Concomitant]
     Dosage: TAKE ONE PILL 3 TIMES A DAY AND 2 PILLS AT BED TIME, MORNING, NOON AND DINNER
     Route: 048
  14. RATIO NYSTATIN [Concomitant]
     Dosage: ONE APPLICATION TWICE A DAY IF NEEDED
     Route: 048
  15. MYLAN PANTOPRAZOLE [Concomitant]
     Dosage: TAKE ONE PILL ONCE A DAY BEFORE A MEAL, MORNING
     Route: 048
  16. PURELAX [Concomitant]
     Active Substance: POLYETHYLENE GLYCOL 3350
     Dosage: DISSOLVE 17 GRAMS IN 250 ML OF LIQUID ONCE A DAY IF NEEDED
     Route: 048
  17. VENLAFAXINE XR [Concomitant]
     Active Substance: VENLAFAXINE HYDROCHLORIDE
     Dosage: TAKE ONE PILL ONCE A DAY BEFORE A MEAL, MORNING
     Route: 048

REACTIONS (2)
  - Weight decreased [Unknown]
  - Sudden death [Fatal]

NARRATIVE: CASE EVENT DATE: 20170404
